FAERS Safety Report 15106289 (Version 1)
Quarter: 2018Q3

REPORT INFORMATION
  Report Type: Spontaneous
  Country: US (occurrence: US)
  Receive Date: 20180704
  Receipt Date: 20180704
  Transmission Date: 20181010
  Serious: No
  Sender: FDA-Public Use
  Company Number: US-GLENMARK PHARMACEUTICALS-2017GMK029160

PATIENT

DRUGS (2)
  1. MUPIROCIN. [Suspect]
     Active Substance: MUPIROCIN
     Indication: STAPHYLOCOCCAL INFECTION
     Dosage: UNK, BID
     Route: 061
  2. MUPIROCIN. [Suspect]
     Active Substance: MUPIROCIN
     Dosage: UNK, BID, (EVERY 1ST WEEK OF THE MONTH)
     Route: 045
     Dates: end: 20171004

REACTIONS (7)
  - Disturbance in attention [Unknown]
  - Headache [Recovered/Resolved with Sequelae]
  - Incorrect route of drug administration [Unknown]
  - Thinking abnormal [Unknown]
  - Incorrect drug administration duration [Unknown]
  - Neck pain [Unknown]
  - Feeling abnormal [Unknown]

NARRATIVE: CASE EVENT DATE: 20171003
